FAERS Safety Report 14306799 (Version 5)
Quarter: 2018Q4

REPORT INFORMATION
  Report Type: Spontaneous
  Country: CA (occurrence: CA)
  Receive Date: 20171220
  Receipt Date: 20181206
  Transmission Date: 20190204
  Serious: Yes (Other)
  Sender: FDA-Public Use
  Company Number: CA-ROCHE-2042686

PATIENT
  Age: 63 Year
  Sex: Male

DRUGS (15)
  1. MONTELUKAST SODIUM. [Suspect]
     Active Substance: MONTELUKAST SODIUM
     Indication: ASTHMA
     Dosage: 1 DF, QD
     Route: 048
     Dates: start: 201609
  2. PRADAXA [Concomitant]
     Active Substance: DABIGATRAN ETEXILATE MESYLATE
     Indication: ATRIAL FIBRILLATION
     Route: 048
     Dates: start: 201601
  3. INDAPAMIDE. [Concomitant]
     Active Substance: INDAPAMIDE
     Indication: HYPERTENSION
     Route: 048
     Dates: start: 201609
  4. TUDORZA [Concomitant]
     Active Substance: ACLIDINIUM BROMIDE
     Route: 055
  5. MELOXICAM. [Concomitant]
     Active Substance: MELOXICAM
     Indication: ARTHRALGIA
     Route: 048
     Dates: start: 2006
  6. TUDORZA [Concomitant]
     Active Substance: ACLIDINIUM BROMIDE
     Indication: ASTHMA
     Route: 055
     Dates: start: 2014
  7. SYMBICORT [Concomitant]
     Active Substance: BUDESONIDE\FORMOTEROL FUMARATE DIHYDRATE
     Indication: ASTHMA
     Route: 055
     Dates: start: 20160601
  8. VENTOLIN [Concomitant]
     Active Substance: ALBUTEROL SULFATE
     Indication: ASTHMA
     Dosage: PRN
     Route: 055
     Dates: start: 1986
  9. SERTRALINE [Concomitant]
     Active Substance: SERTRALINE HYDROCHLORIDE
     Indication: ANXIETY
     Route: 048
     Dates: start: 1996
  10. PREDNISONE. [Concomitant]
     Active Substance: PREDNISONE
     Indication: ASPERGILLUS INFECTION
     Dosage: 1 DF, QD
     Route: 048
     Dates: start: 20160129, end: 201711
  11. ALENDRONATE [Concomitant]
     Active Substance: ALENDRONATE SODIUM
     Indication: OSTEOPOROSIS
  12. XOLAIR [Suspect]
     Active Substance: OMALIZUMAB
     Indication: ASTHMA
     Route: 058
     Dates: start: 20170221
  13. SINGULAIR [Concomitant]
     Active Substance: MONTELUKAST SODIUM
     Indication: PRODUCT USED FOR UNKNOWN INDICATION
     Route: 065
  14. ALENDRONATE [Concomitant]
     Active Substance: ALENDRONATE SODIUM
     Indication: PROPHYLAXIS
     Route: 048
     Dates: start: 201602
  15. MONTELUKAST SODIUM. [Concomitant]
     Active Substance: MONTELUKAST SODIUM
     Indication: ASTHMA
     Dosage: 1 DF, QD
     Route: 048
     Dates: start: 201609

REACTIONS (16)
  - Mobility decreased [Unknown]
  - Obstructive airways disorder [Unknown]
  - Respiratory tract infection [Unknown]
  - Hypogammaglobulinaemia [Unknown]
  - Sleep apnoea syndrome [Unknown]
  - Osteoarthritis [Unknown]
  - Multiple-drug resistance [Unknown]
  - Myopathy [Unknown]
  - Renal impairment [Unknown]
  - Body mass index increased [Unknown]
  - Blood immunoglobulin E increased [Unknown]
  - Blood uric acid increased [Unknown]
  - Obesity [Unknown]
  - Staphylococcal infection [Unknown]
  - Dyspnoea [Unknown]
  - Weight decreased [Unknown]

NARRATIVE: CASE EVENT DATE: 20171128
